FAERS Safety Report 22620867 (Version 1)
Quarter: 2023Q2

REPORT INFORMATION
  Report Type: Report from Study
  Country: US (occurrence: US)
  Receive Date: 20230620
  Receipt Date: 20230620
  Transmission Date: 20230721
  Serious: Yes (Other)
  Sender: FDA-Public Use
  Company Number: US-GILEAD-2023-0626670

PATIENT
  Sex: Male

DRUGS (2)
  1. AMBRISENTAN [Suspect]
     Active Substance: AMBRISENTAN
     Indication: Pulmonary hypertension
     Dosage: 10 MG, QD
     Route: 065
     Dates: start: 20210921
  2. TADALAFIL [Concomitant]
     Active Substance: TADALAFIL

REACTIONS (10)
  - Spinal operation [Unknown]
  - Spinal implantation [Unknown]
  - Carpal tunnel syndrome [Unknown]
  - Musculoskeletal disorder [Not Recovered/Not Resolved]
  - Ill-defined disorder [Not Recovered/Not Resolved]
  - Extra dose administered [Unknown]
  - Neck surgery [Unknown]
  - Pain [Unknown]
  - Dyspnoea exertional [Unknown]
  - Fatigue [Unknown]
